FAERS Safety Report 14465873 (Version 1)
Quarter: 2018Q1

REPORT INFORMATION
  Report Type: Spontaneous
  Country: JP (occurrence: JP)
  Receive Date: 20180131
  Receipt Date: 20180131
  Transmission Date: 20180509
  Serious: Yes (Life-Threatening, Hospitalization)
  Sender: FDA-Public Use
  Company Number: JP-ROCHE-1984131

PATIENT
  Age: 74 Year
  Sex: Female
  Weight: 61 kg

DRUGS (10)
  1. ZACRAS [Concomitant]
     Active Substance: AMLODIPINE BESYLATE\AZILSARTAN
     Dosage: DOSAGE IS UNCERTAIN.
     Route: 048
  2. ETIZOLAM [Concomitant]
     Active Substance: ETIZOLAM
     Dosage: DOSAGE IS UNCERTAIN.
     Route: 048
  3. LASIX [Concomitant]
     Active Substance: FUROSEMIDE
     Dosage: DOSAGE IS UNCERTAIN.
     Route: 065
  4. SELBEX [Concomitant]
     Active Substance: TEPRENONE
     Dosage: DOSAGE IS UNCERTAIN.
     Route: 048
  5. ZOLEDRONIC ACID [Suspect]
     Active Substance: ZOLEDRONIC ACID
     Indication: METASTASES TO BONE
     Dosage: DOSAGE IS UNCERTAIN.
     Route: 065
     Dates: start: 20170721, end: 20170805
  6. PITAVASTATIN CALCIUM [Concomitant]
     Active Substance: PITAVASTATIN CALCIUM
     Dosage: DOSAGE IS UNCERTAIN.
     Route: 048
  7. CLOPIDOGREL SULFATE [Concomitant]
     Active Substance: CLOPIDOGREL BISULFATE
     Dosage: DOSAGE IS UNCERTAIN.
     Route: 048
  8. HERCEPTIN [Suspect]
     Active Substance: TRASTUZUMAB
     Indication: BREAST CANCER
     Dosage: DOSAGE IS UNCERTAIN.
     Route: 041
     Dates: start: 20170805
  9. LAXOBERON [Concomitant]
     Active Substance: SODIUM PICOSULFATE
     Dosage: DOSAGE IS UNCERTAIN.
     Route: 048
  10. URSO [Concomitant]
     Active Substance: URSODIOL
     Dosage: DOSAGE IS UNCERTAIN.
     Route: 048

REACTIONS (4)
  - Hyponatraemia [Recovering/Resolving]
  - IgA nephropathy [Unknown]
  - N-terminal prohormone brain natriuretic peptide increased [Unknown]
  - Acute kidney injury [Recovering/Resolving]

NARRATIVE: CASE EVENT DATE: 20170816
